FAERS Safety Report 4796419-X (Version None)
Quarter: 2005Q3

REPORT INFORMATION
  Report Type: 
  Country: None (occurrence: None)
  Receive Date: 20050916
  Receipt Date: 20050103
  Transmission Date: 20060218
  Serious: Yes (Other)
  Sender: FDA-Public Use
  Company Number: US-JNJFOC-20040904814

PATIENT
  Age: 65 Year
  Sex: Male
  Weight: 73.4827 kg

DRUGS (3)
  1. TOPAMAX [Suspect]
     Indication: NEUROPATHY
     Dosage: 25MG  2 IN 1 DAY
     Dates: start: 20040701
  2. PERCOCET [Concomitant]
  3. PREDNISONE [Concomitant]

REACTIONS (7)
  - ASTHENIA [None]
  - CONFUSIONAL STATE [None]
  - DYSARTHRIA [None]
  - EYE PAIN [None]
  - HALO VISION [None]
  - HEADACHE [None]
  - MYOPIA [None]
